FAERS Safety Report 17720006 (Version 2)
Quarter: 2020Q2

REPORT INFORMATION
  Report Type: Spontaneous
  Country: US (occurrence: US)
  Receive Date: 20200428
  Receipt Date: 20200430
  Transmission Date: 20200714
  Serious: Yes (Hospitalization, Other)
  Sender: FDA-Public Use
  Company Number: US-PFIZER INC-2018358003

PATIENT
  Age: 62 Year
  Sex: Male
  Weight: 133 kg

DRUGS (1)
  1. LYRICA [Suspect]
     Active Substance: PREGABALIN
     Indication: NEUROPATHY PERIPHERAL
     Dosage: 300 MG, 2X/DAY
     Route: 048

REACTIONS (8)
  - Atrial fibrillation [Not Recovered/Not Resolved]
  - Infection [Unknown]
  - Skin ulcer [Recovered/Resolved with Sequelae]
  - Asthenia [Not Recovered/Not Resolved]
  - Diabetes mellitus [Unknown]
  - Skin exfoliation [Unknown]
  - Fall [Recovered/Resolved with Sequelae]
  - Loss of consciousness [Recovered/Resolved with Sequelae]

NARRATIVE: CASE EVENT DATE: 2020
